FAERS Safety Report 25734530 (Version 1)
Quarter: 2025Q3

REPORT INFORMATION
  Report Type: Spontaneous
  Country: RU (occurrence: RU)
  Receive Date: 20250828
  Receipt Date: 20250828
  Transmission Date: 20251021
  Serious: Yes (Death, Life-Threatening, Hospitalization, Other)
  Sender: RANBAXY
  Company Number: RU-SUN PHARMACEUTICAL INDUSTRIES LTD-2025R1-524179

PATIENT
  Age: 6 Month
  Sex: Male
  Weight: 4.1 kg

DRUGS (5)
  1. AMOXICILLIN\CLAVULANIC ACID [Suspect]
     Active Substance: AMOXICILLIN\CLAVULANIC ACID
     Indication: Antibiotic therapy
     Route: 065
  2. IBUPROFEN [Suspect]
     Active Substance: IBUPROFEN
     Indication: Antibiotic therapy
     Route: 065
  3. CEFOPERAZONE\SULBACTAM [Suspect]
     Active Substance: CEFOPERAZONE\SULBACTAM
     Indication: Antibiotic therapy
     Route: 065
  4. ACETAMINOPHEN [Suspect]
     Active Substance: ACETAMINOPHEN
     Indication: Antibiotic therapy
     Route: 065
  5. AZITHROMYCIN [Suspect]
     Active Substance: AZITHROMYCIN
     Indication: Antibiotic therapy
     Route: 065

REACTIONS (7)
  - Condition aggravated [Fatal]
  - Cystic lung disease [Fatal]
  - Pneumonia [Fatal]
  - Malnutrition [Fatal]
  - Coagulopathy [Fatal]
  - Multiple organ dysfunction syndrome [Fatal]
  - Treatment failure [Fatal]
